FAERS Safety Report 5454359-7 (Version None)
Quarter: 2007Q3

REPORT INFORMATION
  Report Type: 
  Country: None (occurrence: None)
  Receive Date: 20070917
  Receipt Date: 20070330
  Transmission Date: 20080115
  Serious: Yes (Other)
  Sender: FDA-Public Use
  Company Number: US-ASTRAZENECA-2006UW12312

PATIENT
  Sex: Male
  Weight: 88.6 kg

DRUGS (4)
  1. SEROQUEL [Suspect]
     Indication: SCHIZOPHRENIA, PARANOID TYPE
     Dosage: 200 MG - 600 MG
     Route: 048
     Dates: start: 20050101, end: 20060101
  2. ZYPREXA [Suspect]
  3. RISPERDAL [Concomitant]
  4. ANTIPSYCHOTIC MEDICATION [Concomitant]
     Dates: start: 20050101, end: 20060101

REACTIONS (3)
  - DIABETIC KETOACIDOSIS [None]
  - PANCREATITIS [None]
  - TYPE 2 DIABETES MELLITUS [None]
